FAERS Safety Report 24340341 (Version 1)
Quarter: 2024Q3

REPORT INFORMATION
  Report Type: Spontaneous
  Country: FR (occurrence: FR)
  Receive Date: 20240919
  Receipt Date: 20240919
  Transmission Date: 20241016
  Serious: Yes (Death, Other)
  Sender: MERCK
  Company Number: None

PATIENT
  Age: 67 Year
  Sex: Female
  Weight: 82 kg

DRUGS (1)
  1. KEYTRUDA [Suspect]
     Active Substance: PEMBROLIZUMAB
     Indication: Renal cancer metastatic
     Route: 042
     Dates: start: 20240516, end: 20240610

REACTIONS (4)
  - Acute motor axonal neuropathy [Fatal]
  - Motor dysfunction [Fatal]
  - Paraesthesia [Fatal]
  - Myopathy [Fatal]

NARRATIVE: CASE EVENT DATE: 20240601
